FAERS Safety Report 4822365-9 (Version None)
Quarter: 2005Q4

REPORT INFORMATION
  Report Type: 
  Country: None (occurrence: None)
  Receive Date: 20051104
  Receipt Date: 20051026
  Transmission Date: 20060501
  Serious: Yes (Other)
  Sender: FDA-Public Use
  Company Number: CHNY2005JP01970

PATIENT

DRUGS (1)
  1. PURSENNID         (SENNA GLYCOSIDES (CA SALTS OF PURIFIED SENNA EXTRAC [Suspect]
     Dosage: 36 MG, PRN, ORAL
     Route: 048

REACTIONS (2)
  - HYPONATRAEMIA [None]
  - INAPPROPRIATE ANTIDIURETIC HORMONE SECRETION [None]
